FAERS Safety Report 4426678-4 (Version None)
Quarter: 2004Q3

REPORT INFORMATION
  Report Type: 
  Country: None (occurrence: None)
  Receive Date: 20040816
  Receipt Date: 20040812
  Transmission Date: 20050211
  Serious: Yes (Hospitalization)
  Sender: FDA-Public Use
  Company Number: DE-MERCK-0408DEU00085

PATIENT
  Age: 70 Year
  Sex: Female

DRUGS (2)
  1. FOSAMAX [Suspect]
     Indication: OSTEOPOROSIS
     Route: 048
     Dates: start: 20040501, end: 20040701
  2. GINKGO BILOBA EXTRACT [Concomitant]
     Route: 065
     Dates: end: 20040701

REACTIONS (2)
  - GASTRIC HAEMORRHAGE [None]
  - MELAENA [None]
